FAERS Safety Report 6582800-5 (Version None)
Quarter: 2010Q1

REPORT INFORMATION
  Report Type: 
  Country: None (occurrence: None)
  Receive Date: 20100216
  Receipt Date: 20100203
  Transmission Date: 20100710
  Serious: Yes (Hospitalization)
  Sender: FDA-Public Use
  Company Number: SE-PFIZER INC-2010014678

PATIENT
  Age: 54 Year
  Sex: Female

DRUGS (2)
  1. SOMAVERT [Suspect]
     Dosage: 20 MG, 1X/DAY
     Dates: start: 20070101, end: 20091201
  2. SANDOSTATIN [Suspect]
     Dosage: UNK
     Dates: start: 20050101, end: 20090101

REACTIONS (1)
  - CHOLELITHIASIS [None]
